FAERS Safety Report 12934345 (Version 1)
Quarter: 2016Q4

REPORT INFORMATION
  Report Type: Spontaneous
  Country: CN (occurrence: CN)
  Receive Date: 20161111
  Receipt Date: 20161111
  Transmission Date: 20170207
  Serious: Yes (Hospitalization)
  Sender: FDA-Public Use
  Company Number: CN-NOVOPROD-517343

PATIENT
  Age: 56 Year
  Sex: Male
  Weight: 50.5 kg

DRUGS (1)
  1. NOVOMIX 30 [Suspect]
     Active Substance: INSULIN ASPART
     Indication: TYPE 2 DIABETES MELLITUS
     Dosage: 22 U, QD (12 U BEFORE BREAKFAST AND 10 U BEFORE DINNER) PAST 5 YEARS
     Route: 065
     Dates: end: 2012

REACTIONS (1)
  - Insulin autoimmune syndrome [Recovered/Resolved]
